FAERS Safety Report 13739164 (Version 1)
Quarter: 2017Q3

REPORT INFORMATION
  Report Type: Spontaneous
  Country: US (occurrence: US)
  Receive Date: 20170710
  Receipt Date: 20170710
  Transmission Date: 20171127
  Serious: Yes (Other)
  Sender: FDA-Public Use
  Company Number: US-SAOL THERAPEUTICS-2017SAO00657

PATIENT
  Age: 58 Year
  Sex: Female

DRUGS (6)
  1. BACLOFEN. [Suspect]
     Active Substance: BACLOFEN
     Dosage: 149.8 ?G, \DAY
     Route: 037
  2. MORPHINE [Suspect]
     Active Substance: MORPHINE
     Dosage: 0.119 MG, \DAY
     Route: 037
  3. BACLOFEN. [Suspect]
     Active Substance: BACLOFEN
     Dosage: 100 ?G, \DAY
     Dates: start: 20120322
  4. BACLOFEN. [Suspect]
     Active Substance: BACLOFEN
     Dosage: 1707.5 ?G, \DAY OLD
     Route: 037
  5. BACLOFEN. [Suspect]
     Active Substance: BACLOFEN
     Dosage: 787.2 ?G, \DAY
  6. MORPHINE [Suspect]
     Active Substance: MORPHINE
     Dosage: 0.6297 MG, \DAY

REACTIONS (7)
  - Muscle spasticity [Recovered/Resolved]
  - Therapeutic response decreased [Recovered/Resolved]
  - Pain [Unknown]
  - Somnolence [Unknown]
  - Fall [Unknown]
  - Device failure [Recovered/Resolved]
  - Device damage [Recovered/Resolved]

NARRATIVE: CASE EVENT DATE: 20110908
